FAERS Safety Report 8889738 (Version 2)
Quarter: 2012Q4

REPORT INFORMATION
  Report Type: 
  Country: IT (occurrence: IT)
  Receive Date: 20121107
  Receipt Date: 20121228
  Transmission Date: 20130627
  Serious: Yes (Hospitalization)
  Sender: FDA-Public Use
  Company Number: IT-SANOFI-AVENTIS-2012SA080306

PATIENT
  Age: 37 Year
  Sex: Male

DRUGS (2)
  1. LANTUS [Suspect]
     Indication: DIABETES MELLITUS
     Route: 058
     Dates: start: 20111020, end: 20121020
  2. HUMULIN [Suspect]
     Indication: DIABETES MELLITUS
     Dosage: strength: 100 U/ml
     Route: 058
     Dates: start: 20111020, end: 20121020

REACTIONS (5)
  - Hypoglycaemia [Recovered/Resolved]
  - Syncope [Recovered/Resolved]
  - Fall [Unknown]
  - Head injury [Recovered/Resolved]
  - Wound [Recovered/Resolved]
